FAERS Safety Report 4686175-8 (Version None)
Quarter: 2005Q2

REPORT INFORMATION
  Report Type: 
  Country: None (occurrence: None)
  Receive Date: 20050609
  Receipt Date: 20050606
  Transmission Date: 20051028
  Serious: Yes (Other)
  Sender: FDA-Public Use
  Company Number: GB-BOEHRINGER INGELHEIM PHARMACEUTICALS, INC.-2005-UK-00989UK

PATIENT
  Age: 78 Year
  Sex: Female

DRUGS (3)
  1. MOBIC [Suspect]
     Indication: ARTHRITIS
     Route: 048
     Dates: start: 20050408, end: 20050413
  2. CO-CODAMOL [Concomitant]
     Route: 048
  3. LOFEPRAMINE [Concomitant]
     Route: 048
     Dates: start: 19950101

REACTIONS (1)
  - KERATITIS [None]
